FAERS Safety Report 4796405-X (Version None)
Quarter: 2005Q4

REPORT INFORMATION
  Report Type: 
  Country: None (occurrence: None)
  Receive Date: 20051007
  Receipt Date: 20050923
  Transmission Date: 20060501
  Serious: Yes (Death)
  Sender: FDA-Public Use
  Company Number: 216889

PATIENT
  Age: 36 Year
  Sex: Male
  Weight: 85 kg

DRUGS (5)
  1. AVASTIN [Suspect]
     Indication: COLON CANCER
     Dosage: 640.5 MG, Q3W, INTRAVENOUS
     Route: 042
     Dates: start: 20050518
  2. OXALIPLATIN (OXALIPLATIN) [Suspect]
     Indication: COLON CANCER
     Dosage: 276.9 MG, Q3W, INTRAVENOUS
     Route: 042
     Dates: start: 20050518
  3. CAPECITABINE (CAPECITABINE) [Suspect]
     Indication: COLON CANCER
     Dosage: 2150 MG, Q3W, ORAL
     Route: 048
     Dates: start: 20050518
  4. FRAGMIN [Concomitant]
  5. PANTOZOL (PANTOPRAZOLE) [Concomitant]

REACTIONS (10)
  - ACUTE PULMONARY OEDEMA [None]
  - ARTERIOSCLEROSIS CORONARY ARTERY [None]
  - ASPIRATION [None]
  - CARDIAC FAILURE ACUTE [None]
  - CARDIOMEGALY [None]
  - JUGULAR VEIN DISTENSION [None]
  - LYMPHADENOPATHY [None]
  - METASTASIS [None]
  - NECROSIS [None]
  - VOMITING [None]
